FAERS Safety Report 12893254 (Version 2)
Quarter: 2016Q4

REPORT INFORMATION
  Report Type: Spontaneous
  Country: US (occurrence: US)
  Receive Date: 20161028
  Receipt Date: 20161111
  Transmission Date: 20170207
  Serious: No
  Sender: FDA-Public Use
  Company Number: US-LUNDBECK-DKLU2019303

PATIENT
  Age: 44 Year
  Sex: Female

DRUGS (6)
  1. MIDODRINE [Suspect]
     Active Substance: MIDODRINE
     Route: 065
     Dates: start: 20161021
  2. NORTHERA [Suspect]
     Active Substance: DROXIDOPA
     Indication: PRODUCT USED FOR UNKNOWN INDICATION
     Route: 065
     Dates: start: 20160831
  3. NORTHERA [Suspect]
     Active Substance: DROXIDOPA
     Route: 065
     Dates: end: 201609
  4. MIDODRINE [Suspect]
     Active Substance: MIDODRINE
     Indication: PRODUCT USED FOR UNKNOWN INDICATION
     Route: 065
  5. NORTHERA [Suspect]
     Active Substance: DROXIDOPA
     Route: 065
     Dates: start: 20161020
  6. NORTHERA [Suspect]
     Active Substance: DROXIDOPA
     Route: 065
     Dates: start: 20161021

REACTIONS (10)
  - Headache [Unknown]
  - Condition aggravated [Unknown]
  - Blood glucose increased [Unknown]
  - Dyskinesia [Unknown]
  - Feeling abnormal [Unknown]
  - Swelling [Unknown]
  - Blood pressure fluctuation [Not Recovered/Not Resolved]
  - Dizziness [Recovered/Resolved]
  - Peripheral swelling [Unknown]
  - Feeling abnormal [Recovered/Resolved]

NARRATIVE: CASE EVENT DATE: 20160926
